FAERS Safety Report 24401699 (Version 1)
Quarter: 2024Q4

REPORT INFORMATION
  Report Type: Spontaneous
  Country: JP (occurrence: JP)
  Receive Date: 20241007
  Receipt Date: 20241007
  Transmission Date: 20250115
  Serious: Yes (Death, Other)
  Sender: GENMAB
  Company Number: JP-GENMAB-2024-03642

PATIENT
  Age: 8 Decade
  Sex: Male

DRUGS (1)
  1. EPKINLY [Suspect]
     Active Substance: EPCORITAMAB-BYSP
     Indication: Follicular lymphoma
     Dosage: 48 MILLIGRAM, ADMINISTRATION IN CYCLE 1 WAS COMPLETED
     Route: 058
     Dates: start: 20240822, end: 2024

REACTIONS (1)
  - Follicular lymphoma [Fatal]

NARRATIVE: CASE EVENT DATE: 20240101
